FAERS Safety Report 12589867 (Version 1)
Quarter: 2016Q3

REPORT INFORMATION
  Report Type: Spontaneous
  Country: CA (occurrence: CA)
  Receive Date: 20160725
  Receipt Date: 20160725
  Transmission Date: 20161109
  Serious: Yes (Other)
  Sender: FDA-Public Use
  Company Number: CA-PFIZER INC-2016348231

PATIENT
  Age: 69 Year
  Sex: Female

DRUGS (1)
  1. ADVIL [Suspect]
     Active Substance: IBUPROFEN

REACTIONS (1)
  - Oesophageal ulcer [Unknown]
